FAERS Safety Report 9352068 (Version 2)
Quarter: 2013Q2

REPORT INFORMATION
  Report Type: Spontaneous
  Country: FR (occurrence: None)
  Receive Date: 20130612
  Receipt Date: 20130626
  Transmission Date: 20140414
  Serious: Yes (Hospitalization)
  Sender: FDA-Public Use
  Company Number: DSM-2013-00530

PATIENT
  Age: 83 Year
  Sex: Female

DRUGS (13)
  1. HYDROCHLOROTHIAZIDE\OLMESARTAN MEDOXOMIL [Suspect]
     Indication: HYPERTENSION
     Route: 048
     Dates: end: 20130328
  2. LASILIX [Suspect]
     Indication: PRODUCT USED FOR UNKNOWN INDICATION
     Route: 048
     Dates: end: 20130328
  3. SERMION [Suspect]
     Indication: PRODUCT USED FOR UNKNOWN INDICATION
     Route: 048
     Dates: end: 20130328
  4. SYNEDIL [Suspect]
     Indication: PRODUCT USED FOR UNKNOWN INDICATION
     Route: 048
     Dates: end: 20130328
  5. TRIVASTAL [Suspect]
     Indication: PRODUCT USED FOR UNKNOWN INDICATION
     Route: 048
     Dates: end: 20130328
  6. KARDEGIC [Concomitant]
     Indication: HYPERTENSION
     Route: 048
     Dates: end: 02030328
  7. TAHOR (ATORVASTATIN CALCIUM) (ATORVASTATIN CALCIUM) [Concomitant]
  8. CORGARD (NADOLOL) (NADOLOL) [Concomitant]
  9. AMLOR (AMLODIPINE BESILATE) (AMLODIPINE BESILATE) [Concomitant]
  10. CALCIDIA (CALCIUM CARBONATE) (CALCIUM CARBONATE) [Concomitant]
  11. LEVOTHYROX (LEVOTHYROXINE SODIUM) (LEVOTHYROXINE SODIUM) [Concomitant]
  12. LUDIOMIL (MAPROTILINE HYDROCHLORIDE) (MAPROTILINE HYDROCHLORIDE) [Concomitant]
  13. XANAX [Concomitant]

REACTIONS (3)
  - Fall [None]
  - Extrapyramidal disorder [None]
  - Drug interaction [None]
